FAERS Safety Report 9617746 (Version 1)
Quarter: 2013Q4

REPORT INFORMATION
  Report Type: Spontaneous
  Country: US (occurrence: US)
  Receive Date: 20131011
  Receipt Date: 20131011
  Transmission Date: 20140711
  Serious: No
  Sender: FDA-Public Use
  Company Number: US-009507513-1309USA011921

PATIENT
  Sex: Female

DRUGS (7)
  1. ZOCOR [Suspect]
     Indication: BLOOD CHOLESTEROL INCREASED
     Dosage: UNK
     Route: 048
     Dates: start: 199309
  2. ZETIA [Suspect]
     Route: 048
  3. CELEBREX [Concomitant]
  4. CORTISONE [Concomitant]
  5. TETRACYCLINE HYDROCHLORIDE [Concomitant]
  6. CRESTOR [Concomitant]
  7. LIPITOR [Concomitant]

REACTIONS (9)
  - Sensation of heaviness [Recovered/Resolved]
  - Gait disturbance [Recovered/Resolved]
  - Aphagia [Recovered/Resolved]
  - Muscular weakness [Recovered/Resolved]
  - Nausea [Recovered/Resolved]
  - Nausea [Unknown]
  - Malaise [Unknown]
  - Alopecia [Unknown]
  - Sensation of heaviness [Unknown]
